FAERS Safety Report 13142586 (Version 2)
Quarter: 2017Q1

REPORT INFORMATION
  Report Type: Report from Study
  Country: US (occurrence: US)
  Receive Date: 20170123
  Receipt Date: 20170324
  Transmission Date: 20170428
  Serious: Yes (Other)
  Sender: FDA-Public Use
  Company Number: PHHY2015US160054

PATIENT
  Age: 48 Year
  Sex: Female

DRUGS (1)
  1. GILENYA [Suspect]
     Active Substance: FINGOLIMOD HYDROCHLORIDE
     Indication: MULTIPLE SCLEROSIS
     Dosage: UNK, QD
     Route: 048

REACTIONS (5)
  - Fall [Recovered/Resolved]
  - Avulsion fracture [Unknown]
  - Facial bones fracture [Unknown]
  - Foot fracture [Unknown]
  - Concussion [Unknown]

NARRATIVE: CASE EVENT DATE: 20150720
